FAERS Safety Report 9004714 (Version 1)
Quarter: 2013Q1

REPORT INFORMATION
  Report Type: Spontaneous
  Country: US (occurrence: None)
  Receive Date: 20130104
  Receipt Date: 20130104
  Transmission Date: 20140127
  Serious: Yes (Other)
  Sender: FDA-Public Use
  Company Number: None

PATIENT
  Age: 46 Year
  Sex: Male
  Weight: 95.26 kg

DRUGS (1)
  1. ATORVASTATIN [Suspect]
     Indication: BLOOD CHOLESTEROL INCREASED
     Dates: start: 20120822, end: 20121122

REACTIONS (12)
  - Myalgia [None]
  - Gait disturbance [None]
  - Nausea [None]
  - Aphagia [None]
  - Faeces discoloured [None]
  - Abnormal faeces [None]
  - Blood pressure increased [None]
  - Product substitution issue [None]
  - Malaise [None]
  - Abdominal pain upper [None]
  - Pain in extremity [None]
  - Product quality issue [None]
